FAERS Safety Report 17525621 (Version 2)
Quarter: 2024Q3

REPORT INFORMATION
  Report Type: Spontaneous
  Country: GB (occurrence: GB)
  Receive Date: 20200311
  Receipt Date: 20240918
  Transmission Date: 20241016
  Serious: Yes (Other)
  Sender: AUROBINDO
  Company Number: GB-MHRA-EYC 00216396

PATIENT
  Age: 31 Year
  Sex: Female
  Weight: 56 kg

DRUGS (1)
  1. PAROXETINE [Suspect]
     Active Substance: PAROXETINE
     Indication: Perinatal depression
     Dosage: 20 MILLIGRAM
     Route: 048
     Dates: start: 201710

REACTIONS (2)
  - High risk sexual behaviour [Unknown]
  - Hypersexuality [Recovered/Resolved]

NARRATIVE: CASE EVENT DATE: 20180101
